FAERS Safety Report 8229499-X (Version None)
Quarter: 2012Q1

REPORT INFORMATION
  Report Type: 
  Country: None (occurrence: None)
  Receive Date: 20120319
  Receipt Date: 20120313
  Transmission Date: 20120608
  Serious: Yes (Hospitalization)
  Sender: FDA-Public Use
  Company Number: IT-B.I. PHARMACEUTICALS,INC./RIDGEFIELD-2011-IT-00330IT

PATIENT
  Sex: Male

DRUGS (13)
  1. AGGRENOX [Suspect]
     Indication: ANTICOAGULANT THERAPY
     Dosage: STRENGHT: 200 MG + 25 MG; DAILY DOSE: TWO POSOLOGIC UNITS DAILY
     Route: 048
     Dates: start: 20111128, end: 20111212
  2. LEVETIRACETAM [Concomitant]
  3. LEVOTIROXINA [Concomitant]
  4. LEVODOPA [Concomitant]
  5. BISOPROLOLO FUMARATO [Concomitant]
  6. POTASSIO CANRENOATO [Concomitant]
  7. ALLOPURINOL [Concomitant]
  8. ACIDO VALPROICO [Concomitant]
  9. ACIDO FOLICO [Concomitant]
  10. RAMIPRIL [Concomitant]
  11. LANSOPRAZOLO [Concomitant]
  12. FUROSEMIDE [Concomitant]
  13. OXCARBAZEPINE [Concomitant]

REACTIONS (2)
  - CHEST DISCOMFORT [None]
  - TACHYCARDIA [None]
